FAERS Safety Report 6817650-5 (Version None)
Quarter: 2010Q3

REPORT INFORMATION
  Report Type: 
  Country: None (occurrence: None)
  Receive Date: 20100706
  Receipt Date: 20100630
  Transmission Date: 20110219
  Serious: Yes (Other)
  Sender: FDA-Public Use
  Company Number: DE-PFIZER INC-2010081317

PATIENT
  Sex: Female
  Weight: 98 kg

DRUGS (3)
  1. AROMASIN [Suspect]
     Indication: BREAST CANCER
     Dosage: UNK
     Route: 048
  2. METOPROLOL [Suspect]
     Indication: HYPERTENSION
     Dosage: 50 MG, 1X/DAY
     Route: 048
  3. ENALAPRIL MALEATE AND HYDROCHLOROTHIAZIDE [Suspect]
     Indication: HYPERTENSION
     Dosage: 1 DF (10 ENALAPRIL MALEATE, 25 HYDROCHLOROTHIAZIDE)  1X/DAY
     Route: 048

REACTIONS (2)
  - ARTHRALGIA [None]
  - JOINT STIFFNESS [None]
